FAERS Safety Report 10008674 (Version 1)
Quarter: 2014Q1

REPORT INFORMATION
  Report Type: Spontaneous
  Country: US (occurrence: US)
  Receive Date: 20140312
  Receipt Date: 20140312
  Transmission Date: 20141002
  Serious: No
  Sender: FDA-Public Use
  Company Number: US-INCYTE CORPORATION-2012IN000531

PATIENT
  Age: 81 Year
  Sex: Female

DRUGS (6)
  1. JAKAFI [Suspect]
     Indication: MYELOFIBROSIS
     Dosage: 20 MG, BID
     Route: 048
     Dates: start: 20120204
  2. METOPROLOL [Concomitant]
     Dosage: 100 MG, QD
  3. FUROSEMIDE [Concomitant]
     Dosage: 40 MG, QD
  4. LEVOTHYROXINE [Concomitant]
     Dosage: 0.125 MG, QD
  5. IMDUR [Concomitant]
     Dosage: 30 MG, QD
  6. ENOXAPARIN [Concomitant]
     Dosage: 60 MG, QD

REACTIONS (1)
  - Therapeutic response unexpected [Unknown]
